FAERS Safety Report 25006133 (Version 1)
Quarter: 2025Q1

REPORT INFORMATION
  Report Type: Spontaneous
  Country: FR (occurrence: FR)
  Receive Date: 20250224
  Receipt Date: 20250224
  Transmission Date: 20250409
  Serious: Yes (Hospitalization)
  Sender: PFIZER
  Company Number: None

PATIENT
  Age: 65 Year
  Sex: Female

DRUGS (10)
  1. PEMETREXED [Suspect]
     Active Substance: PEMETREXED
     Indication: Lung adenocarcinoma
     Route: 042
     Dates: start: 20241121, end: 20250109
  2. CLINDAMYCIN HYDROCHLORIDE [Suspect]
     Active Substance: CLINDAMYCIN HYDROCHLORIDE
     Indication: Dermo-hypodermitis
     Dosage: 1200 MG, 1X/DAY
     Route: 048
     Dates: start: 20241130, end: 20241204
  3. CLINDAMYCIN HYDROCHLORIDE [Suspect]
     Active Substance: CLINDAMYCIN HYDROCHLORIDE
     Dosage: 1800 MG, 1X/DAY
     Route: 048
     Dates: start: 20241204, end: 20241211
  4. AMOXICILLIN [Suspect]
     Active Substance: AMOXICILLIN
     Indication: Dermo-hypodermitis
     Dosage: 3 G, 1X/DAY
     Route: 048
     Dates: start: 20241108, end: 20241113
  5. AMOXICILLIN [Suspect]
     Active Substance: AMOXICILLIN
     Dosage: 4 G, 1X/DAY
     Route: 048
     Dates: start: 20241113, end: 20241118
  6. AMOXICILLIN [Suspect]
     Active Substance: AMOXICILLIN
     Dosage: 4 G, 1X/DAY
     Dates: start: 20241127, end: 20241204
  7. AUGMENTIN [Suspect]
     Active Substance: AMOXICILLIN\CLAVULANATE POTASSIUM
     Indication: Dermo-hypodermitis
     Dosage: 3 G, 1X/DAY
     Route: 048
     Dates: start: 20241204, end: 20241211
  8. KEYTRUDA [Suspect]
     Active Substance: PEMBROLIZUMAB
     Indication: Lung adenocarcinoma
     Route: 042
     Dates: start: 20241121, end: 20250109
  9. IOMERON [Suspect]
     Active Substance: IOMEPROL
     Indication: Computerised tomogram
     Route: 042
     Dates: start: 20250102, end: 20250102
  10. AKYNZEO (NETUPITANT\PALONOSETRON HYDROCHLORIDE) [Suspect]
     Active Substance: NETUPITANT\PALONOSETRON HYDROCHLORIDE
     Route: 048
     Dates: start: 20241121, end: 20250109

REACTIONS (2)
  - Rash maculo-papular [Recovered/Resolved]
  - Rash maculo-papular [Recovered/Resolved]

NARRATIVE: CASE EVENT DATE: 20241211
